FAERS Safety Report 20054454 (Version 2)
Quarter: 2021Q4

REPORT INFORMATION
  Report Type: Spontaneous
  Country: BR (occurrence: BR)
  Receive Date: 20211110
  Receipt Date: 20211121
  Transmission Date: 20220303
  Serious: Yes (Life-Threatening, Other)
  Sender: FDA-Public Use
  Company Number: None

PATIENT
  Age: 72 Year
  Sex: Male
  Weight: 83 kg

DRUGS (7)
  1. BRIDION [Suspect]
     Active Substance: SUGAMMADEX
     Dosage: (100MG/ML, 2ML BOTTLE) 200MG ONCE A DAY
     Route: 042
     Dates: start: 20201022, end: 20201022
  2. PANTOPRAZOLE [Concomitant]
     Active Substance: PANTOPRAZOLE
     Dosage: 40 MILLIGRAM, QD
     Route: 042
     Dates: start: 20201022
  3. DIPYRONE [Concomitant]
     Active Substance: DIPYRONE
     Dosage: (1G (500MG / ML) AMPOULE OF 2ML) DAILY DOSE OF 3G
     Route: 042
     Dates: start: 20201022
  4. ONDANSETRON HYDROCHLORIDE [Concomitant]
     Active Substance: ONDANSETRON HYDROCHLORIDE
     Dosage: (4MG (2MG / ML) 2ML AMPOULE) 4G ONCE A DAY
     Route: 042
     Dates: start: 20201022
  5. CEFAZOLIN [Concomitant]
     Active Substance: CEFAZOLIN
     Dosage: 2 GRAM, QD
     Route: 042
     Dates: start: 20201022
  6. LIDOCAINE [Concomitant]
     Active Substance: LIDOCAINE
     Dosage: (ISOBARIC (NO PRESERVATIVES) 5ML AMPOULE) 50MG ONCE A DAY
     Route: 042
     Dates: start: 20201022
  7. METARAMINOL [Concomitant]
     Active Substance: METARAMINOL
     Dosage: (1ML AMPOULE OF 10MG / ML) 10MG ONCE A DAY
     Route: 042
     Dates: start: 20201022

REACTIONS (2)
  - Anaphylactic shock [Recovered/Resolved]
  - Cardio-respiratory arrest [Recovered/Resolved]

NARRATIVE: CASE EVENT DATE: 20201022
